FAERS Safety Report 5889231-1 (Version None)
Quarter: 2008Q3

REPORT INFORMATION
  Report Type: 
  Country: None (occurrence: None)
  Receive Date: 20080919
  Receipt Date: 20080910
  Transmission Date: 20090109
  Serious: Yes (Death, Hospitalization)
  Sender: FDA-Public Use
  Company Number: JP-JNJFOC-20080902943

PATIENT
  Sex: Female
  Weight: 62 kg

DRUGS (32)
  1. REMICADE [Suspect]
     Route: 042
  2. REMICADE [Suspect]
     Route: 042
  3. REMICADE [Suspect]
     Route: 042
  4. REMICADE [Suspect]
     Route: 042
  5. REMICADE [Suspect]
     Route: 042
  6. REMICADE [Suspect]
     Route: 042
  7. REMICADE [Suspect]
     Route: 042
  8. REMICADE [Suspect]
     Route: 042
  9. REMICADE [Suspect]
     Route: 042
  10. REMICADE [Suspect]
     Route: 042
  11. REMICADE [Suspect]
     Route: 042
  12. REMICADE [Suspect]
     Route: 042
  13. REMICADE [Suspect]
     Route: 042
  14. REMICADE [Suspect]
     Route: 042
  15. REMICADE [Suspect]
     Indication: RHEUMATOID ARTHRITIS
     Route: 042
  16. METHOTREXATE [Concomitant]
     Route: 048
  17. METHOTREXATE [Concomitant]
     Route: 048
  18. METHOTREXATE [Concomitant]
     Indication: RHEUMATOID ARTHRITIS
     Route: 048
  19. GLYBURIDE [Concomitant]
     Dosage: 1.25MG TO 7.5MG
     Route: 048
  20. FOLIAMIN [Concomitant]
     Route: 048
  21. PREDNISOLONE [Concomitant]
     Indication: RHEUMATOID ARTHRITIS
     Route: 048
  22. COTRIM [Concomitant]
     Route: 048
  23. INSULIN [Concomitant]
     Route: 058
  24. ISCONTIN [Concomitant]
     Indication: ANTIBIOTIC PROPHYLAXIS
     Route: 048
  25. DICLOFENAC [Concomitant]
     Indication: RHEUMATOID ARTHRITIS
     Route: 048
  26. RABEPRAZOLE SODIUM [Concomitant]
     Route: 048
  27. ALFACALCIDOL [Concomitant]
     Route: 048
  28. FUROSEMIDE [Concomitant]
     Route: 048
  29. AMLODIPINE BESYLATE [Concomitant]
     Route: 048
  30. RANITIDINE [Concomitant]
     Route: 048
  31. TRIAZOLAM [Concomitant]
     Route: 048
  32. ADRENAL HORMONE PREPARATIONS [Concomitant]
     Indication: RHEUMATOID ARTHRITIS

REACTIONS (2)
  - CARDIAC FAILURE [None]
  - LYMPHOMA [None]
